FAERS Safety Report 4571452-1 (Version None)
Quarter: 2005Q1

REPORT INFORMATION
  Report Type: 
  Country: None (occurrence: None)
  Receive Date: 20050207
  Receipt Date: 20050125
  Transmission Date: 20050727
  Serious: Yes (Life-Threatening, Hospitalization)
  Sender: FDA-Public Use
  Company Number: US-JNJFOC-20040800243

PATIENT
  Sex: Female
  Weight: 49.9 kg

DRUGS (6)
  1. INFLIXIMAB [Suspect]
     Indication: CROHN'S DISEASE
     Route: 042
  2. NARCOTIC ANALGESICS [Concomitant]
  3. TPN [Concomitant]
  4. TPN [Concomitant]
  5. TPN [Concomitant]
  6. ANTIBIOTICS [Concomitant]

REACTIONS (9)
  - ANAEMIA [None]
  - BACTERAEMIA [None]
  - BACTERIAL SEPSIS [None]
  - CANDIDA SEPSIS [None]
  - CENTRAL LINE INFECTION [None]
  - CORONARY ARTERY DISEASE [None]
  - ENTEROCOCCAL INFECTION [None]
  - ENTEROCOLONIC FISTULA [None]
  - FUNGAL INFECTION [None]
